FAERS Safety Report 14940287 (Version 1)
Quarter: 2018Q2

REPORT INFORMATION
  Report Type: Report from Study
  Country: CA (occurrence: CA)
  Receive Date: 20180525
  Receipt Date: 20180525
  Transmission Date: 20180711
  Serious: No
  Sender: FDA-Public Use
  Company Number: CA-SA-2016SA200019

PATIENT
  Age: 35 Year
  Sex: Female

DRUGS (7)
  1. ACETAMINOPHEN. [Concomitant]
     Active Substance: ACETAMINOPHEN
     Indication: PREMEDICATION
     Dosage: 1000 MG,UNK
     Route: 048
     Dates: start: 20161024, end: 20161028
  2. SEPTRA [Concomitant]
     Active Substance: SULFAMETHOXAZOLE\TRIMETHOPRIM
     Dosage: UNK
  3. ALEMTUZUMAB [Suspect]
     Active Substance: ALEMTUZUMAB
     Dosage: 12 MG,QD
     Route: 041
     Dates: start: 20161024, end: 20161028
  4. ACICLOVIR [Concomitant]
     Active Substance: ACYCLOVIR
     Indication: PREMEDICATION
     Dosage: 200 MG,BID
     Route: 048
     Dates: start: 20161024
  5. METHYLPREDNISOLONE. [Suspect]
     Active Substance: METHYLPREDNISOLONE
     Indication: PREMEDICATION
     Dosage: 1 G,UNK
     Route: 042
     Dates: start: 20161024, end: 20161026
  6. RANITIDINE. [Concomitant]
     Active Substance: RANITIDINE
     Indication: PREMEDICATION
     Dosage: 150 MG,UNK
     Route: 048
     Dates: start: 20161024, end: 20161028
  7. REACTINE [CETIRIZINE HYDROCHLORIDE] [Concomitant]
     Active Substance: CETIRIZINE HYDROCHLORIDE
     Indication: PREMEDICATION
     Dosage: 10 MG,UNK
     Route: 048
     Dates: start: 20161024, end: 20161028

REACTIONS (39)
  - Swelling [Recovered/Resolved]
  - Monocyte count increased [Recovered/Resolved]
  - Platelet count increased [Not Recovered/Not Resolved]
  - Hypoaesthesia [Not Recovered/Not Resolved]
  - Pyrexia [Recovered/Resolved]
  - Rash [Recovered/Resolved]
  - Tremor [Recovered/Resolved]
  - White blood cell count increased [Recovered/Resolved]
  - Fatigue [Recovered/Resolved]
  - Nodule [Not Recovered/Not Resolved]
  - Swelling face [Recovered/Resolved]
  - Neutrophil count increased [Recovered/Resolved]
  - Lymphocyte count decreased [Not Recovered/Not Resolved]
  - Tooth disorder [Recovering/Resolving]
  - Cough [Recovered/Resolved]
  - Rash [Recovered/Resolved]
  - Blood pressure increased [Recovered/Resolved]
  - Bacterial test positive [Not Recovered/Not Resolved]
  - Speech disorder [Not Recovered/Not Resolved]
  - Nasal congestion [Recovered/Resolved]
  - Urinary sediment present [Not Recovered/Not Resolved]
  - Heart rate decreased [Recovered/Resolved]
  - Dizziness [Recovered/Resolved]
  - Tremor [Not Recovered/Not Resolved]
  - Sinusitis [Recovered/Resolved]
  - Eosinophil count increased [Recovered/Resolved]
  - Mean cell haemoglobin increased [Not Recovered/Not Resolved]
  - Blood urine present [Recovered/Resolved]
  - Headache [Recovered/Resolved]
  - Dyspnoea [Recovered/Resolved]
  - Muscle spasms [Recovered/Resolved]
  - Red blood cells urine positive [Not Recovered/Not Resolved]
  - Abdominal discomfort [Recovered/Resolved]
  - Erythema [Recovered/Resolved]
  - Flushing [Recovered/Resolved]
  - Cognitive disorder [Not Recovered/Not Resolved]
  - Furuncle [Not Recovered/Not Resolved]
  - Pain [Recovered/Resolved]
  - Insomnia [Unknown]

NARRATIVE: CASE EVENT DATE: 2016
